FAERS Safety Report 5624482-2 (Version None)
Quarter: 2008Q1

REPORT INFORMATION
  Report Type: 
  Country: None (occurrence: None)
  Receive Date: 20080211
  Receipt Date: 20080211
  Transmission Date: 20080703
  Serious: No
  Sender: FDA-Public Use
  Company Number: None

PATIENT
  Age: 26 Year
  Sex: Female
  Weight: 107.5025 kg

DRUGS (2)
  1. OMNISCAN [Suspect]
     Dosage: 20 CC 1 IV
     Route: 042
  2. MAGNEVIST [Suspect]
     Dosage: 20 CC 1 IV
     Route: 042

REACTIONS (1)
  - NEPHROGENIC SYSTEMIC FIBROSIS [None]
